FAERS Safety Report 5136615-5 (Version None)
Quarter: 2006Q4

REPORT INFORMATION
  Report Type: 
  Country: None (occurrence: None)
  Receive Date: 20061027
  Receipt Date: 20061017
  Transmission Date: 20070319
  Serious: Yes (Hospitalization, Other)
  Sender: FDA-Public Use
  Company Number: BR-ABBOTT-06P-020-0347393-00

PATIENT
  Sex: Female

DRUGS (2)
  1. VALPAKINE [Suspect]
     Indication: BIPOLAR DISORDER
     Route: 048
     Dates: start: 20061008, end: 20061008
  2. VALPAKINE [Suspect]

REACTIONS (3)
  - DRUG TOXICITY [None]
  - INTENTIONAL OVERDOSE [None]
  - SUICIDE ATTEMPT [None]
